FAERS Safety Report 12196518 (Version 3)
Quarter: 2016Q3

REPORT INFORMATION
  Report Type: Spontaneous
  Country: JP (occurrence: JP)
  Receive Date: 20160321
  Receipt Date: 20160915
  Transmission Date: 20161109
  Serious: Yes (Other)
  Sender: FDA-Public Use
  Company Number: US-MALLINCKRODT-T201600952

PATIENT
  Age: 67 Year
  Sex: Male
  Weight: 52 kg

DRUGS (11)
  1. BIOFERMIN [Concomitant]
     Active Substance: BACILLUS SUBTILIS\LACTOBACILLUS ACIDOPHILUS\STREPTOCOCCUS FAECAIS
     Dosage: 3 G
     Route: 048
  2. METHADONE [Suspect]
     Active Substance: METHADONE HYDROCHLORIDE
     Indication: CANCER PAIN
     Dosage: 5 MG (15 MG DAILY DOSE)
     Route: 048
     Dates: start: 20140917, end: 20141015
  3. LYRICA [Concomitant]
     Active Substance: PREGABALIN
     Indication: ANALGESIC THERAPY
     Dosage: 100 MG
     Route: 048
     Dates: end: 20141006
  4. METHADONE [Suspect]
     Active Substance: METHADONE HYDROCHLORIDE
     Dosage: 5 MG (10 MG DAILY DOSE)
     Route: 048
     Dates: start: 20141016, end: 20141028
  5. GASTER [Concomitant]
     Active Substance: FAMOTIDINE
     Dosage: 20 MG
     Route: 048
  6. HARNAL [Concomitant]
     Active Substance: TAMSULOSIN HYDROCHLORIDE
     Dosage: 0.2 MG
     Route: 048
     Dates: end: 20141006
  7. OXINORM [Concomitant]
     Active Substance: OXYCODONE HYDROCHLORIDE
     Indication: ANALGESIC THERAPY
     Dosage: 2.5 - 5 MG, PRN
     Route: 048
     Dates: start: 20140916
  8. MAGMITT [Concomitant]
     Active Substance: MAGNESIUM OXIDE
     Dosage: 990 MG
     Route: 048
  9. URSO [Concomitant]
     Active Substance: URSODIOL
     Dosage: 150 MG
     Route: 048
  10. MOBIC [Concomitant]
     Active Substance: MELOXICAM
     Indication: ANALGESIC THERAPY
     Dosage: 10 MG
     Route: 048
  11. DECADRON [Concomitant]
     Active Substance: DEXAMETHASONE
     Dosage: 1 MG
     Route: 048

REACTIONS (4)
  - Vomiting [Not Recovered/Not Resolved]
  - Hyperuricaemia [Recovered/Resolved]
  - Somnolence [Recovered/Resolved]
  - Delirium [Not Recovered/Not Resolved]

NARRATIVE: CASE EVENT DATE: 20140918
